FAERS Safety Report 5187703-9 (Version None)
Quarter: 2006Q4

REPORT INFORMATION
  Report Type: 
  Country: None (occurrence: None)
  Receive Date: 20061221
  Receipt Date: 20061211
  Transmission Date: 20070319
  Serious: Yes (Hospitalization, Other)
  Sender: FDA-Public Use
  Company Number: PHBS2006CL19208

PATIENT
  Age: 65 Year
  Sex: Male
  Weight: 104 kg

DRUGS (7)
  1. TAREG [Suspect]
     Indication: HYPERTENSION
     Dosage: 160 MG/DAY
     Route: 048
  2. ISOSORBIDE [Concomitant]
  3. NEO-SINTROM [Concomitant]
  4. CARVEDILOL [Concomitant]
  5. ASPIRIN [Concomitant]
  6. FUROSEMIDE [Concomitant]
  7. ESPIRONOLACTONA [Concomitant]

REACTIONS (7)
  - ARRHYTHMIA [None]
  - CHEST DISCOMFORT [None]
  - EJECTION FRACTION DECREASED [None]
  - ELECTROCARDIOGRAM ABNORMAL [None]
  - FATIGUE [None]
  - MYOCARDIAL INFARCTION [None]
  - VENTRICULAR HYPERTROPHY [None]
